FAERS Safety Report 6207440-9 (Version None)
Quarter: 2009Q2

REPORT INFORMATION
  Report Type: 
  Country: None (occurrence: None)
  Receive Date: 20090526
  Receipt Date: 20090518
  Transmission Date: 20091009
  Serious: Yes (Other)
  Sender: FDA-Public Use
  Company Number: WAES 0905USA02187

PATIENT
  Age: 67 Year
  Sex: Female
  Weight: 99.7913 kg

DRUGS (2)
  1. ZOCOR [Suspect]
     Indication: BLOOD CHOLESTEROL INCREASED
     Dosage: PO
     Route: 048
  2. LIPITOR [Suspect]
     Indication: BLOOD CHOLESTEROL INCREASED
     Dosage: 20 MG/DAILY/PO
     Route: 048

REACTIONS (4)
  - DIABETES MELLITUS [None]
  - HYPERTENSION [None]
  - MUSCLE DISORDER [None]
  - WRONG TECHNIQUE IN DRUG USAGE PROCESS [None]
